FAERS Safety Report 10205980 (Version 1)
Quarter: 2014Q2

REPORT INFORMATION
  Report Type: Spontaneous
  Country: US (occurrence: None)
  Receive Date: 20140528
  Receipt Date: 20140528
  Transmission Date: 20141212
  Serious: Yes (Hospitalization)
  Sender: FDA-Public Use
  Company Number: None

PATIENT
  Age: 69 Year
  Sex: Female
  Weight: 69.4 kg

DRUGS (1)
  1. PRIVIGEN [Suspect]
     Indication: IMMUNODEFICIENCY COMMON VARIABLE
     Dosage: 30 GRAMS OVER 3 HOURS EVERY 4 233KS PERIPHERAL IV
     Route: 042
     Dates: start: 20140331, end: 20140515

REACTIONS (1)
  - Myocardial infarction [None]
